FAERS Safety Report 22916968 (Version 5)
Quarter: 2023Q4

REPORT INFORMATION
  Report Type: Report from Study
  Country: CA (occurrence: CA)
  Receive Date: 20230907
  Receipt Date: 20231121
  Transmission Date: 20240110
  Serious: Yes (Hospitalization)
  Sender: FDA-Public Use
  Company Number: CA-BIOVITRUM-2023-CA-013709

PATIENT
  Age: 89 Year
  Sex: Male

DRUGS (2)
  1. KINERET [Suspect]
     Active Substance: ANAKINRA
     Indication: Pericarditis
     Dosage: 100MG, DAILY
     Route: 058
     Dates: start: 20230816
  2. KINERET [Suspect]
     Active Substance: ANAKINRA
     Dosage: THREE TIMES WEEKLY ON MONDAYS, WEDNESDAYS, AND FRIDAYS
     Route: 058

REACTIONS (4)
  - Fall [Unknown]
  - Off label use [Unknown]
  - Contusion [Unknown]
  - Rash [Unknown]
